FAERS Safety Report 6481244-4 (Version None)
Quarter: 2009Q4

REPORT INFORMATION
  Report Type: 
  Country: None (occurrence: None)
  Receive Date: 20091208
  Receipt Date: 20091130
  Transmission Date: 20100525
  Serious: Yes (Other)
  Sender: FDA-Public Use
  Company Number: A0798077A

PATIENT
  Sex: Female

DRUGS (2)
  1. TYKERB [Suspect]
     Dosage: 1250MG PER DAY
     Route: 048
     Dates: start: 20090714, end: 20091112
  2. XELODA [Suspect]
     Route: 065
     Dates: end: 20091112

REACTIONS (4)
  - BREAST CANCER METASTATIC [None]
  - DIARRHOEA [None]
  - DRUG INEFFECTIVE [None]
  - DRY SKIN [None]
